FAERS Safety Report 9922421 (Version 5)
Quarter: 2014Q3

REPORT INFORMATION
  Report Type: Report from Study
  Country: BE (occurrence: BE)
  Receive Date: 20140225
  Receipt Date: 20140911
  Transmission Date: 20150326
  Serious: Yes (Death, Hospitalization, Disabling)
  Sender: FDA-Public Use
  Company Number: BE-EXELIXIS-XL18414003978

PATIENT
  Age: 67 Year
  Sex: Male
  Weight: 73 kg

DRUGS (16)
  1. OXYCONTIN [Concomitant]
     Active Substance: OXYCODONE HYDROCHLORIDE
  2. REDOMEX [Concomitant]
  3. DECAPEPTYL [Concomitant]
     Active Substance: TRIPTORELIN ACETATE
  4. FRAXIPARINE [Concomitant]
     Active Substance: NADROPARIN CALCIUM
  5. EFFEXOR [Concomitant]
     Active Substance: VENLAFAXINE HYDROCHLORIDE
  6. MOVICOL [Concomitant]
     Active Substance: POLYETHYLENE GLYCOL 3350\POTASSIUM CHLORIDE\SODIUM BICARBONATE\SODIUM CHLORIDE
  7. EUTHYROX [Concomitant]
     Active Substance: LEVOTHYROXINE SODIUM
  8. ZOMETA [Concomitant]
     Active Substance: ZOLEDRONIC ACID
  9. XL184 [Suspect]
     Active Substance: CABOZANTINIB
     Dosage: 40 MG, QD
     Route: 048
     Dates: end: 20140129
  10. DAFALGAN [Concomitant]
     Active Substance: ACETAMINOPHEN
  11. LAXOBERON [Concomitant]
     Active Substance: SODIUM PICOSULFATE
  12. NEXIAM [Concomitant]
     Active Substance: ESOMEPRAZOLE
  13. XL184 [Suspect]
     Active Substance: CABOZANTINIB
     Indication: PROSTATE CANCER
     Dosage: 5 MG, BID
     Route: 048
     Dates: start: 20130305, end: 20140129
  14. GAVISCON [Concomitant]
     Active Substance: ALUMINUM HYDROXIDE\MAGNESIUM CARBONATE
  15. XL184 [Suspect]
     Active Substance: CABOZANTINIB
     Indication: PROSTATE CANCER
     Dosage: 60 MG, QD
     Route: 048
     Dates: start: 20130304
  16. D-CURE [Concomitant]

REACTIONS (2)
  - Pleural effusion [Not Recovered/Not Resolved]
  - Euthanasia [Fatal]

NARRATIVE: CASE EVENT DATE: 20140128
